FAERS Safety Report 6019423-2 (Version None)
Quarter: 2008Q4

REPORT INFORMATION
  Report Type: 
  Country: None (occurrence: None)
  Receive Date: 20081224
  Receipt Date: 20081215
  Transmission Date: 20090506
  Serious: Yes (Hospitalization)
  Sender: FDA-Public Use
  Company Number: CH-PFIZER INC-2008157925

PATIENT

DRUGS (6)
  1. FLUCONAZOLE [Suspect]
     Route: 048
     Dates: start: 20081027, end: 20081028
  2. FLUCONAZOLE [Suspect]
     Route: 048
     Dates: start: 20081031
  3. ALIMTA [Suspect]
     Dosage: FREQUENCY: CYCLIC,
     Dates: start: 20081002
  4. FOLIC ACID [Concomitant]
     Route: 048
  5. TEMESTA [Concomitant]
     Route: 048
  6. NEXIUM [Concomitant]
     Route: 048

REACTIONS (7)
  - ABDOMINAL PAIN [None]
  - ANAEMIA [None]
  - LIVER INJURY [None]
  - MUCOSAL INFLAMMATION [None]
  - NEUTROPENIA [None]
  - RENAL FAILURE ACUTE [None]
  - THROMBOCYTOPENIA [None]
